APPROVED DRUG PRODUCT: TOPIRAMATE
Active Ingredient: TOPIRAMATE
Strength: 100MG
Dosage Form/Route: TABLET;ORAL
Application: A077643 | Product #003
Applicant: WATSON LABORATORIES INC
Approved: Mar 27, 2009 | RLD: No | RS: No | Type: DISCN